FAERS Safety Report 13676911 (Version 1)
Quarter: 2017Q2

REPORT INFORMATION
  Report Type: Spontaneous
  Country: SE (occurrence: TZ)
  Receive Date: 20170622
  Receipt Date: 20170622
  Transmission Date: 20170830
  Serious: Yes (Other)
  Sender: FDA-Public Use
  Company Number: SE-CIPLA LTD.-2017TZ10936

PATIENT

DRUGS (8)
  1. LAMIVUDINE. [Suspect]
     Active Substance: LAMIVUDINE
     Indication: HIV INFECTION WHO CLINICAL STAGE II
     Dosage: UNK, 90.78 MONTHS
     Route: 065
  2. EFAVIRENZ [Suspect]
     Active Substance: EFAVIRENZ
     Indication: HIV INFECTION WHO CLINICAL STAGE II
     Dosage: UNK, 58.3 MONTHS
     Route: 065
  3. STAVUDINE. [Suspect]
     Active Substance: STAVUDINE
     Indication: HIV INFECTION WHO CLINICAL STAGE II
     Dosage: UNK
     Route: 065
  4. EMTRICITABINE [Suspect]
     Active Substance: EMTRICITABINE
     Indication: HIV INFECTION WHO CLINICAL STAGE II
     Dosage: UNK
     Route: 065
  5. RILPIVIRINE [Suspect]
     Active Substance: RILPIVIRINE
     Indication: HIV INFECTION WHO CLINICAL STAGE II
     Dosage: UNK
     Route: 065
  6. NEVIRAPINE. [Suspect]
     Active Substance: NEVIRAPINE
     Indication: HIV INFECTION WHO CLINICAL STAGE II
     Dosage: UNK, 90.78 MONTHS
     Route: 065
  7. DIDANOSINE. [Suspect]
     Active Substance: DIDANOSINE
     Indication: HIV INFECTION WHO CLINICAL STAGE II
     Dosage: UNK
     Route: 065
  8. ZIDOVUDINE. [Suspect]
     Active Substance: ZIDOVUDINE
     Indication: HIV INFECTION WHO CLINICAL STAGE II
     Dosage: UNK, 90.78 MONTHS
     Route: 065

REACTIONS (2)
  - Drug resistance [Unknown]
  - Treatment failure [Unknown]
